FAERS Safety Report 12085047 (Version 1)
Quarter: 2016Q1

REPORT INFORMATION
  Report Type: Spontaneous
  Country: US (occurrence: US)
  Receive Date: 20160217
  Receipt Date: 20160217
  Transmission Date: 20160526
  Serious: Yes (Other)
  Sender: FDA-Public Use
  Company Number: US-BRISTOL-MYERS SQUIBB COMPANY-BMS-2016-009430

PATIENT
  Age: 70 Year
  Sex: Female
  Weight: 79.4 kg

DRUGS (3)
  1. COUMADINE [Suspect]
     Active Substance: WARFARIN SODIUM
     Indication: PRODUCT USED FOR UNKNOWN INDICATION
     Route: 065
  2. NUEDEXTA [Suspect]
     Active Substance: DEXTROMETHORPHAN HYDROBROMIDE\QUINIDINE SULFATE
     Indication: CRYING
     Dosage: 1 DF, Q12H
     Route: 048
     Dates: start: 20151014, end: 20151105
  3. NUEDEXTA [Suspect]
     Active Substance: DEXTROMETHORPHAN HYDROBROMIDE\QUINIDINE SULFATE
     Indication: AFFECT LABILITY

REACTIONS (9)
  - Fall [Recovered/Resolved]
  - Daydreaming [Recovered/Resolved]
  - International normalised ratio increased [Recovered/Resolved]
  - Dizziness [Unknown]
  - Choking [Recovered/Resolved]
  - Blood urine present [Recovered/Resolved]
  - Mental status changes [Unknown]
  - Balance disorder [Unknown]
  - Hypersomnia [Unknown]

NARRATIVE: CASE EVENT DATE: 20151105
